FAERS Safety Report 10314062 (Version 1)
Quarter: 2014Q3

REPORT INFORMATION
  Report Type: Spontaneous
  Country: US (occurrence: US)
  Receive Date: 20140718
  Receipt Date: 20140718
  Transmission Date: 20150326
  Serious: No
  Sender: FDA-Public Use
  Company Number: US-009507513-1407USA005633

PATIENT
  Sex: Male

DRUGS (2)
  1. OXYCODONE [Concomitant]
     Active Substance: OXYCODONE
     Indication: BACK DISORDER
     Dosage: UNK, UNKNOWN
  2. MIRALAX [Suspect]
     Active Substance: POLYETHYLENE GLYCOL 3350
     Indication: PRODUCT USED FOR UNKNOWN INDICATION
     Dosage: UNK, UNKNOWN
     Route: 048
     Dates: start: 201406

REACTIONS (1)
  - Diarrhoea [Not Recovered/Not Resolved]

NARRATIVE: CASE EVENT DATE: 201406
